FAERS Safety Report 7668891-9 (Version None)
Quarter: 2011Q3

REPORT INFORMATION
  Report Type: 
  Country: None (occurrence: None)
  Receive Date: 20110808
  Receipt Date: 20110728
  Transmission Date: 20111222
  Serious: Yes (Hospitalization, Other)
  Sender: FDA-Public Use
  Company Number: GB-TEVA-294070ISR

PATIENT
  Sex: Female

DRUGS (2)
  1. DIAZEPAM [Suspect]
  2. XOLAIR [Suspect]
     Indication: ASTHMA
     Dosage: 64.2857 MILLIGRAM;

REACTIONS (2)
  - OVERDOSE [None]
  - RESPIRATORY FAILURE [None]
